FAERS Safety Report 9496568 (Version 2)
Quarter: 2013Q3

REPORT INFORMATION
  Report Type: Spontaneous
  Country: CN (occurrence: CN)
  Receive Date: 20130904
  Receipt Date: 20130909
  Transmission Date: 20140515
  Serious: Yes (Death, Life-Threatening)
  Sender: FDA-Public Use
  Company Number: CN-BRACCO-000564

PATIENT
  Age: 69 Year
  Sex: Female

DRUGS (2)
  1. NORMAL SALINE [Concomitant]
     Route: 042
     Dates: start: 20130826, end: 20130826
  2. IOPAMIRO [Suspect]
     Indication: ANGIOGRAM
     Route: 042
     Dates: start: 20130826, end: 20130826

REACTIONS (3)
  - Sudden death [Fatal]
  - Restlessness [Unknown]
  - Pallor [Unknown]
